FAERS Safety Report 4528770-2 (Version None)
Quarter: 2004Q4

REPORT INFORMATION
  Report Type: 
  Country: None (occurrence: None)
  Receive Date: 20041216
  Receipt Date: 20041206
  Transmission Date: 20050328
  Serious: Yes (Death, Hospitalization)
  Sender: FDA-Public Use
  Company Number: CA-ROCHE-388641

PATIENT
  Age: 18 Year
  Sex: Male

DRUGS (1)
  1. ACCUTANE [Suspect]
     Indication: ACNE
     Route: 048
     Dates: start: 19980115, end: 19980315

REACTIONS (6)
  - AGGRESSION [None]
  - AGITATION [None]
  - COMPLETED SUICIDE [None]
  - DEPRESSION [None]
  - PSYCHOTIC DISORDER [None]
  - SUICIDE ATTEMPT [None]
